FAERS Safety Report 6412167-4 (Version None)
Quarter: 2009Q4

REPORT INFORMATION
  Report Type: 
  Country: None (occurrence: None)
  Receive Date: 20091023
  Receipt Date: 20091013
  Transmission Date: 20100525
  Serious: Yes (Hospitalization)
  Sender: FDA-Public Use
  Company Number: A0795840A

PATIENT
  Age: 66 Year
  Sex: Male

DRUGS (10)
  1. AVANDIA [Suspect]
     Dosage: 4MG TWICE PER DAY
     Route: 048
     Dates: start: 20020301, end: 20070701
  2. AVANDAMET [Suspect]
     Route: 048
     Dates: start: 20041201, end: 20050309
  3. DIOVAN [Concomitant]
  4. ZETIA [Concomitant]
  5. FUROSEMIDE [Concomitant]
  6. PRAVASTATIN [Concomitant]
  7. PRANDIN [Concomitant]
  8. METFORMIN HCL [Concomitant]
  9. RANITIDINE [Concomitant]
  10. BYETTA [Concomitant]

REACTIONS (2)
  - CORONARY ARTERY DISEASE [None]
  - MYOCARDIAL INFARCTION [None]
